FAERS Safety Report 7178804-4 (Version None)
Quarter: 2010Q4

REPORT INFORMATION
  Report Type: 
  Country: None (occurrence: None)
  Receive Date: 20101217
  Receipt Date: 20101217
  Transmission Date: 20110411
  Serious: No
  Sender: FDA-Public Use
  Company Number: None

PATIENT
  Sex: Male
  Weight: 80.2867 kg

DRUGS (4)
  1. CRESTOR [Suspect]
  2. LIPITOR [Suspect]
  3. TRICOR [Suspect]
  4. LIVALO [Suspect]

REACTIONS (7)
  - BLOOD TESTOSTERONE DECREASED [None]
  - DIZZINESS [None]
  - GYNAECOMASTIA [None]
  - HYPOAESTHESIA ORAL [None]
  - INSOMNIA [None]
  - MYALGIA [None]
  - NEUROPATHY PERIPHERAL [None]
